FAERS Safety Report 10480024 (Version 21)
Quarter: 2019Q2

REPORT INFORMATION
  Report Type: Report from Study
  Country: CA (occurrence: CA)
  Receive Date: 20140929
  Receipt Date: 20190626
  Transmission Date: 20190711
  Serious: Yes (Other)
  Sender: FDA-Public Use
  Company Number: CA-ROCHE-1332993

PATIENT
  Age: 72 Year
  Sex: Female
  Weight: 102.1 kg

DRUGS (37)
  1. RITUXAN [Suspect]
     Active Substance: RITUXIMAB
     Indication: SYSTEMIC LUPUS ERYTHEMATOSUS
  2. PREDNISONE. [Suspect]
     Active Substance: PREDNISONE
     Indication: RHEUMATOID ARTHRITIS
     Route: 065
  3. JANUVIA [Concomitant]
     Active Substance: SITAGLIPTIN PHOSPHATE
     Indication: OFF LABEL USE
     Route: 065
  4. PERINDOPRIL [Concomitant]
     Active Substance: PERINDOPRIL
     Indication: OFF LABEL USE
  5. SULFASALAZINE. [Suspect]
     Active Substance: SULFASALAZINE
     Indication: OFF LABEL USE
     Route: 065
     Dates: start: 2012
  6. ACETAMINOPHEN. [Concomitant]
     Active Substance: ACETAMINOPHEN
     Indication: PREMEDICATION
     Route: 048
     Dates: start: 20130717
  7. MELOXICAM. [Concomitant]
     Active Substance: MELOXICAM
     Indication: OFF LABEL USE
     Route: 065
  8. PREDNISONE. [Suspect]
     Active Substance: PREDNISONE
     Indication: MYOSITIS
     Dosage: TREATMENT DETAILS AS PER TREATING PHYSICIAN
     Route: 048
     Dates: start: 2001
  9. PREDNISONE. [Suspect]
     Active Substance: PREDNISONE
     Indication: OFF LABEL USE
  10. FOLIC ACID. [Concomitant]
     Active Substance: FOLIC ACID
     Indication: OFF LABEL USE
     Route: 065
  11. PLAQUENIL [Concomitant]
     Active Substance: HYDROXYCHLOROQUINE SULFATE
     Indication: RHEUMATOID ARTHRITIS
     Route: 048
     Dates: start: 2001
  12. CELLCEPT [Suspect]
     Active Substance: MYCOPHENOLATE MOFETIL\MYCOPHENOLATE MOFETIL HYDROCHLORIDE
     Indication: OFF LABEL USE
  13. RITUXAN [Suspect]
     Active Substance: RITUXIMAB
     Indication: MIXED CONNECTIVE TISSUE DISEASE
  14. RITUXAN [Suspect]
     Active Substance: RITUXIMAB
     Indication: OFF LABEL USE
  15. CELLCEPT [Suspect]
     Active Substance: MYCOPHENOLATE MOFETIL\MYCOPHENOLATE MOFETIL HYDROCHLORIDE
     Indication: MYOSITIS
  16. TYLENOL [Concomitant]
     Active Substance: ACETAMINOPHEN
     Indication: OFF LABEL USE
     Route: 065
  17. SYNTHROID [Concomitant]
     Active Substance: LEVOTHYROXINE SODIUM
     Indication: OFF LABEL USE
     Route: 065
  18. DOMPERIDONE [Concomitant]
     Active Substance: DOMPERIDONE
     Indication: OFF LABEL USE
     Route: 065
  19. RITUXAN [Suspect]
     Active Substance: RITUXIMAB
     Indication: RHEUMATOID ARTHRITIS
     Dosage: LAST RITUXIMAB RECEIVED: 31/JUL/2013.?MOST RECENT DOSE ON 05/FEB/2014?LAST DOSE 07/JUL/2015.?LAST DO
     Route: 042
     Dates: start: 20130717
  20. DOCUSATE SODIUM. [Concomitant]
     Active Substance: DOCUSATE SODIUM
     Indication: OFF LABEL USE
     Route: 065
  21. METHYLPREDNISOLONE. [Concomitant]
     Active Substance: METHYLPREDNISOLONE
     Indication: PREMEDICATION
     Route: 042
     Dates: start: 20130717
  22. METFORMIN [Concomitant]
     Active Substance: METFORMIN HYDROCHLORIDE
     Indication: OFF LABEL USE
     Route: 065
  23. JANUMET [Concomitant]
     Active Substance: METFORMIN HYDROCHLORIDE\SITAGLIPTIN PHOSPHATE
     Indication: OFF LABEL USE
  24. RITUXAN [Suspect]
     Active Substance: RITUXIMAB
     Indication: POLYMYOSITIS
     Dosage: TREATMENT DETAILS AS PRE TREATING PHYSICIAN
     Route: 042
     Dates: start: 20140122
  25. SULFASALAZINE. [Suspect]
     Active Substance: SULFASALAZINE
     Indication: RHEUMATOID ARTHRITIS
     Route: 065
  26. HYDROXYZINE [Concomitant]
     Active Substance: HYDROXYZINE HYDROCHLORIDE
     Indication: OFF LABEL USE
     Route: 065
  27. VITAMIN B6 [Concomitant]
     Active Substance: PYRIDOXINE HYDROCHLORIDE
     Indication: OFF LABEL USE
     Route: 065
  28. OMEPRAZOLE. [Concomitant]
     Active Substance: OMEPRAZOLE
     Indication: OFF LABEL USE
     Route: 065
  29. PLAQUENIL [Concomitant]
     Active Substance: HYDROXYCHLOROQUINE SULFATE
     Indication: OFF LABEL USE
     Route: 048
     Dates: start: 2001
  30. DIPHENHYDRAMINE. [Concomitant]
     Active Substance: DIPHENHYDRAMINE
     Indication: OFF LABEL USE
  31. DEMEROL [Concomitant]
     Active Substance: MEPERIDINE HYDROCHLORIDE
     Indication: OFF LABEL USE
  32. CELLCEPT [Suspect]
     Active Substance: MYCOPHENOLATE MOFETIL\MYCOPHENOLATE MOFETIL HYDROCHLORIDE
     Indication: RHEUMATOID ARTHRITIS
     Route: 065
     Dates: start: 2012, end: 201703
  33. PREDNISONE. [Suspect]
     Active Substance: PREDNISONE
     Indication: VASCULITIS
  34. ACETAMINOPHEN. [Concomitant]
     Active Substance: ACETAMINOPHEN
     Indication: OFF LABEL USE
  35. METHYLPREDNISOLONE. [Concomitant]
     Active Substance: METHYLPREDNISOLONE
     Indication: OFF LABEL USE
  36. DIPHENHYDRAMINE. [Concomitant]
     Active Substance: DIPHENHYDRAMINE
     Indication: PREMEDICATION
     Route: 048
     Dates: start: 20130717
  37. CRESTOR [Concomitant]
     Active Substance: ROSUVASTATIN CALCIUM
     Indication: OFF LABEL USE

REACTIONS (48)
  - Stoma site erythema [Not Recovered/Not Resolved]
  - Abdominal pain upper [Unknown]
  - Off label use [Unknown]
  - Chondrocalcinosis pyrophosphate [Unknown]
  - Nasopharyngitis [Unknown]
  - Infusion related reaction [Recovered/Resolved]
  - Infusion related reaction [Recovered/Resolved]
  - Fatigue [Not Recovered/Not Resolved]
  - Nasal congestion [Not Recovered/Not Resolved]
  - Fatigue [Unknown]
  - Dry eye [Unknown]
  - Immunosuppression [Unknown]
  - Drug ineffective [Unknown]
  - Diarrhoea [Recovered/Resolved]
  - Dysphagia [Unknown]
  - Aortic stenosis [Unknown]
  - Tooth injury [Unknown]
  - Abdominal pain [Not Recovered/Not Resolved]
  - Blood pressure fluctuation [Unknown]
  - Influenza [Recovered/Resolved]
  - Sleep disorder [Unknown]
  - Back pain [Unknown]
  - Arthralgia [Recovering/Resolving]
  - Systemic lupus erythematosus rash [Recovered/Resolved]
  - Asthma [Unknown]
  - Skin tightness [Unknown]
  - Aortic valve stenosis [Not Recovered/Not Resolved]
  - Cough [Recovered/Resolved]
  - Nausea [Not Recovered/Not Resolved]
  - Dyspnoea [Unknown]
  - Constipation [Unknown]
  - Carpal tunnel syndrome [Unknown]
  - Helicobacter infection [Unknown]
  - Vertigo [Not Recovered/Not Resolved]
  - Hyperhidrosis [Unknown]
  - Vomiting [Unknown]
  - Hypoaesthesia [Recovering/Resolving]
  - Oxygen saturation decreased [Unknown]
  - Dry mouth [Unknown]
  - Campylobacter infection [Unknown]
  - Middle insomnia [Unknown]
  - Dupuytren^s contracture [Unknown]
  - Chest pain [Unknown]
  - Nausea [Unknown]
  - Joint swelling [Not Recovered/Not Resolved]
  - Blood pressure diastolic abnormal [Unknown]
  - Dizziness [Not Recovered/Not Resolved]
  - Cushingoid [Unknown]

NARRATIVE: CASE EVENT DATE: 2013
